FAERS Safety Report 7443868-7 (Version None)
Quarter: 2011Q2

REPORT INFORMATION
  Report Type: 
  Country: None (occurrence: None)
  Receive Date: 20110428
  Receipt Date: 20081103
  Transmission Date: 20111010
  Serious: Yes (Hospitalization, Other)
  Sender: FDA-Public Use
  Company Number: US-BAYER-200837676NA

PATIENT
  Age: 73 Year
  Sex: Male

DRUGS (34)
  1. SIMVASTATIN [Concomitant]
     Dosage: 40 MG AT BEDTIME
     Route: 048
     Dates: start: 20040607
  2. ANCEF [Concomitant]
     Dosage: 1 GM EVERY 8HRS
     Route: 042
     Dates: start: 20060609
  3. CARDENE [Concomitant]
     Dosage: 25 MG, UNK
     Route: 042
     Dates: start: 20060609, end: 20060612
  4. ADVAIR DISKUS 100/50 [Concomitant]
     Dosage: 50/250 MCG TWICE
     Route: 045
     Dates: start: 20011121
  5. DIGOXIN [Concomitant]
     Dosage: 0.25 MG, QD
     Route: 042
     Dates: start: 20060611, end: 20060613
  6. PLATELETS [Concomitant]
     Dosage: 1 U, UNK
     Dates: start: 20060620
  7. COUMADIN [Concomitant]
     Dosage: 5 MG, QD
     Route: 048
     Dates: start: 20060612, end: 20060616
  8. DIGOXIN [Concomitant]
     Dosage: 0.25 MG, QD
     Route: 048
     Dates: start: 20060611, end: 20060613
  9. MORPHINE [Concomitant]
     Dosage: 2-6MG
     Route: 042
     Dates: start: 20060609, end: 20060612
  10. DOBUTREX [Concomitant]
     Dosage: 1-5 MCG/KG/MINUTE
     Route: 042
     Dates: start: 20060609, end: 20060613
  11. CORDARONE [Concomitant]
     Dosage: 150-900 MG, 1 MG/MINUTE
     Route: 042
     Dates: start: 20060609, end: 20061001
  12. EPINEPHRINE [Concomitant]
     Dosage: 1-8MG
     Route: 042
     Dates: start: 20060609, end: 20060609
  13. AMLODIPINE [Concomitant]
     Dosage: 5-10 MG DAILY
     Route: 048
     Dates: start: 19940101
  14. PROVENTIL [Concomitant]
     Indication: DYSPNOEA
     Dosage: 90 MCG, 2 PUFFS EVERY FOUR HOURS AS NEEDED
     Route: 045
     Dates: start: 20060401
  15. MOMETASONE FUROATE [Concomitant]
     Dosage: 220 MCG, 1-2 PUFFS AT BEDTIME TO TWICE DAILY
     Route: 045
     Dates: start: 20060523
  16. DUONEB [Concomitant]
     Dosage: 2.5/0.5MG/3ML
     Route: 045
     Dates: start: 20060604
  17. NITROGLYCERIN [Concomitant]
     Dosage: 50-100 X 3
     Route: 042
     Dates: start: 20060609
  18. COREG [Concomitant]
     Dosage: 3.125-6.25 MG TWICE DAILY
     Route: 048
     Dates: start: 20060605
  19. HYDRALAZINE [Concomitant]
     Dosage: 12.5 MG, TID
     Route: 048
     Dates: start: 20060606, end: 20070131
  20. PULMICORT [Concomitant]
     Dosage: 0.5 MG, UNK
     Route: 045
     Dates: start: 20060609
  21. INDOMETHACIN [Concomitant]
     Indication: GOUT
     Dosage: UNK
     Dates: start: 20071113
  22. CRYOPRECIPITATES [Concomitant]
     Dosage: 3000 ML, UNK
     Dates: start: 20060609
  23. TRASYLOL [Suspect]
     Indication: AORTIC VALVE REPLACEMENT
     Dosage: 2 MILLION KIU LOADING DOSE, THEN 500,000 KIU/HOUR.
     Route: 042
     Dates: start: 20060609, end: 20060609
  24. ALBUMIN (HUMAN) [Concomitant]
     Dosage: 500 CC
     Route: 042
     Dates: start: 20060609
  25. FELODIPINE [Concomitant]
     Dosage: 10 MG, QD
     Route: 048
     Dates: start: 19980928
  26. COLCHICINE [Concomitant]
     Indication: GOUT
     Dosage: UNK
     Dates: start: 20071113
  27. HEPARIN [Concomitant]
     Dosage: DRIP, 5,000-31,000 UNITS
     Route: 042
     Dates: start: 20060609, end: 20060706
  28. INSULIN [INSULIN] [Concomitant]
     Dosage: DRIP
     Route: 042
     Dates: start: 20060609, end: 20060611
  29. ACETYLSALICYLIC ACID SRT [Concomitant]
     Dosage: 81-325 MG DAILY TO EVERY OTHER DAY
     Route: 048
     Dates: start: 19980928
  30. METOPROLOL TARTRATE [Concomitant]
     Dosage: 25-150 MG DAILY TO TWICE DAILY
     Route: 048
     Dates: start: 20010806, end: 20060614
  31. FORADIL [Concomitant]
     Dosage: 12 MCG TWICE DAILY
     Route: 045
     Dates: start: 20060523
  32. ADVIL [CHLORPHENAMINE MALEATE,IBUPROFEN,PSEUDOEPHEDRINE HYDROCHLORIDE] [Concomitant]
     Dosage: UNK UNK, PRN
     Route: 048
     Dates: start: 20050822
  33. NIPRIDE [Concomitant]
     Dosage: DRIP
     Route: 042
     Dates: start: 20060609, end: 20060610
  34. RED BLOOD CELLS [Concomitant]
     Dosage: 2 U, UNK
     Dates: start: 20060620

REACTIONS (9)
  - RENAL INJURY [None]
  - PAIN [None]
  - ANXIETY [None]
  - EMOTIONAL DISORDER [None]
  - STRESS [None]
  - RENAL FAILURE [None]
  - EMOTIONAL DISTRESS [None]
  - INJURY [None]
  - UNEVALUABLE EVENT [None]
